FAERS Safety Report 16039168 (Version 3)
Quarter: 2021Q2

REPORT INFORMATION
  Report Type: Spontaneous
  Country: US (occurrence: US)
  Receive Date: 20190306
  Receipt Date: 20210611
  Transmission Date: 20210716
  Serious: No
  Sender: FDA-Public Use
  Company Number: US-PFIZER INC-2019098362

PATIENT
  Age: 70 Year
  Sex: Female

DRUGS (5)
  1. PHENERGAN [Suspect]
     Active Substance: PROMETHAZINE HYDROCHLORIDE
     Dosage: UNK
  2. IBUPROFEN. [Suspect]
     Active Substance: IBUPROFEN
     Dosage: UNK
  3. DEMEROL [Suspect]
     Active Substance: MEPERIDINE HYDROCHLORIDE
     Dosage: UNK
  4. CHLORAL HYDRATE [Suspect]
     Active Substance: CHLORAL HYDRATE
  5. ANCEF [Suspect]
     Active Substance: CEFAZOLIN SODIUM

REACTIONS (1)
  - Drug hypersensitivity [Unknown]
